FAERS Safety Report 14111007 (Version 1)
Quarter: 2017Q4

REPORT INFORMATION
  Report Type: Report from Study
  Country: GB (occurrence: GB)
  Receive Date: 20171020
  Receipt Date: 20171020
  Transmission Date: 20180321
  Serious: Yes (Other)
  Sender: FDA-Public Use
  Company Number: GB-UCBSA-2017041425

PATIENT
  Age: 72 Year
  Sex: Female

DRUGS (3)
  1. ROTIGOTINE [Suspect]
     Active Substance: ROTIGOTINE
     Indication: PARKINSON^S DISEASE
     Dosage: UNK
  2. CARBIDOPA LEVODOPA [Concomitant]
     Active Substance: CARBIDOPA\LEVODOPA
     Indication: PRODUCT USED FOR UNKNOWN INDICATION
     Dosage: UNK
  3. SELEGILINE [Concomitant]
     Active Substance: SELEGILINE
     Indication: PRODUCT USED FOR UNKNOWN INDICATION

REACTIONS (16)
  - Choking [Unknown]
  - Dysphagia [Unknown]
  - Malaise [Unknown]
  - Sexual dysfunction [Unknown]
  - Memory impairment [Unknown]
  - Micturition urgency [Unknown]
  - Sensory disturbance [Unknown]
  - Diplopia [Unknown]
  - Gastrointestinal motility disorder [Unknown]
  - Vomiting [Unknown]
  - Dizziness [Unknown]
  - Asthenia [Unknown]
  - Disturbance in attention [Unknown]
  - Initial insomnia [Unknown]
  - Middle insomnia [Unknown]
  - Anal incontinence [Unknown]
